FAERS Safety Report 5725485-X (Version None)
Quarter: 2008Q2

REPORT INFORMATION
  Report Type: 
  Country: None (occurrence: None)
  Receive Date: 20080501
  Receipt Date: 20080425
  Transmission Date: 20081010
  Serious: Yes (Hospitalization)
  Sender: FDA-Public Use
  Company Number: US-KINGPHARMUSA00001-K200800481

PATIENT

DRUGS (10)
  1. ALTACE [Suspect]
     Indication: CARDIAC FAILURE
     Dosage: 2.5 MG, QD
     Route: 048
  2. AMAREL [Suspect]
     Indication: DIABETES MELLITUS
     Dosage: 2 MG, QD
     Route: 048
  3. KARDEGIC                           /00002703/ [Suspect]
     Indication: THROMBOSIS PROPHYLAXIS
     Dosage: 75 MG, QD
     Route: 048
  4. INIPOMP                            /01263201/ [Suspect]
     Indication: ABDOMINAL PAIN UPPER
     Dosage: 20 MG, QD
     Route: 048
  5. CARDENSIEL [Suspect]
     Indication: CARDIAC FAILURE
     Dosage: 1.25 MG, QD
     Route: 048
  6. ALDACTONE [Suspect]
     Indication: CARDIAC FAILURE
     Dosage: 25 MG, QD
     Route: 048
  7. ZOCOR [Suspect]
     Dosage: 40 MG, QD
     Route: 048
  8. BURINEX [Suspect]
     Indication: CARDIAC FAILURE
     Dosage: 3 MG, QD
     Route: 048
     Dates: end: 20071108
  9. BURINEX [Suspect]
     Dosage: 7 MG, QD
     Route: 048
     Dates: start: 20071109, end: 20071113
  10. BURINEX [Suspect]
     Dosage: UNK, QD
     Route: 048

REACTIONS (5)
  - DRUG ERUPTION [None]
  - DYSPNOEA [None]
  - PRURITUS [None]
  - PURPURA [None]
  - RASH [None]
